FAERS Safety Report 8924864 (Version 1)
Quarter: 2012Q4

REPORT INFORMATION
  Report Type: 
  Country: US (occurrence: US)
  Receive Date: 20121126
  Receipt Date: 20121126
  Transmission Date: 20130627
  Serious: Yes (Hospitalization)
  Sender: FDA-Public Use
  Company Number: US-BAYER-2012-121464

PATIENT
  Age: 33 Year
  Sex: Female
  Weight: 151.93 kg

DRUGS (28)
  1. YASMIN [Suspect]
  2. YAZ [Suspect]
  3. LITHIUM CARBONATE [Concomitant]
     Dosage: 300 mg, daily
  4. ABILIFY [Concomitant]
     Dosage: 5 mg, daily
  5. PHENTERMINE HYDROCHLORIDE [Concomitant]
     Dosage: 37.5 mg, UNK
  6. WELLBUTRIN XL [Concomitant]
     Dosage: 300 mg, daily
  7. LISINOPRIL/HCTZ [Concomitant]
     Dosage: 20/25 mg
  8. LASIX [Concomitant]
     Dosage: 40 mg, daily
  9. POTASSIUM CHLORIDE [Concomitant]
     Dosage: 20 mEq, daily
  10. SEROQUEL [Concomitant]
     Dosage: 100 mg, QHS
  11. SEROQUEL [Concomitant]
     Dosage: 50 mg, UNK
  12. PROAIR HFA [Concomitant]
     Route: 045
  13. LEVAQUIN [Concomitant]
     Dosage: 500 mg, DAILY
  14. BENADRYL [Concomitant]
     Dosage: 12.5 mg, UNK
     Route: 042
     Dates: start: 20090326
  15. BENADRYL [Concomitant]
     Dosage: 25 mg, UNK
     Route: 048
     Dates: start: 20090329
  16. SOLU-MEDROL [Concomitant]
     Dosage: 125 mg, UNK
     Route: 042
     Dates: start: 20090326
  17. TOPROL XL [Concomitant]
     Dosage: 50 mg, UNK
  18. LOPRESSOR [Concomitant]
     Dosage: 50 mg, UNK
  19. SILVER SULFADIAZINE [Concomitant]
  20. VICODIN [Concomitant]
     Dosage: PRN
  21. PREDNISONE [Concomitant]
     Dosage: 10 mg, UNK
  22. DILAUDID [Concomitant]
     Indication: PAIN
  23. ZOFRAN [Concomitant]
  24. NEXIUM [Concomitant]
  25. FENTANYL [Concomitant]
     Indication: PAIN
  26. XOPENEX [Concomitant]
  27. STOOL SOFTENER [Concomitant]
  28. TRAMADOL [Concomitant]
     Indication: PAIN

REACTIONS (3)
  - Pulmonary embolism [None]
  - Deep vein thrombosis [Recovered/Resolved]
  - Thrombophlebitis superficial [None]
